FAERS Safety Report 9913923 (Version 1)
Quarter: 2014Q1

REPORT INFORMATION
  Report Type: Spontaneous
  Country: US (occurrence: None)
  Receive Date: 20140219
  Receipt Date: 20140219
  Transmission Date: 20141002
  Serious: Yes (Disabling)
  Sender: FDA-Public Use
  Company Number: None

PATIENT
  Age: 32 Year
  Sex: Male
  Weight: 77.57 kg

DRUGS (1)
  1. AVELOX [Suspect]
     Indication: SINUSITIS
     Route: 048

REACTIONS (8)
  - Musculoskeletal stiffness [None]
  - Myalgia [None]
  - Mobility decreased [None]
  - Fatigue [None]
  - Gait disturbance [None]
  - Arthropathy [None]
  - Back pain [None]
  - Muscle spasms [None]
